FAERS Safety Report 8092145-2 (Version None)
Quarter: 2012Q1

REPORT INFORMATION
  Report Type: 
  Country: None (occurrence: None)
  Receive Date: 20120129
  Receipt Date: 20111107
  Transmission Date: 20120608
  Serious: No
  Sender: FDA-Public Use
  Company Number: US-ABBOTT-11P-163-0871916-00

PATIENT
  Age: 70 Year
  Sex: Female

DRUGS (9)
  1. PREVACID [Concomitant]
     Indication: GASTROOESOPHAGEAL REFLUX DISEASE
     Dosage: DAILY
  2. HUMIRA [Suspect]
     Indication: PSORIATIC ARTHROPATHY
     Dates: start: 20111004
  3. ZOLPIDEM [Concomitant]
     Indication: INSOMNIA
     Dosage: DAILY
  4. PAROXETINE [Concomitant]
     Indication: GASTROINTESTINAL DISORDER
     Dosage: DAILY
  5. LEVBID [Concomitant]
     Indication: ABDOMINAL PAIN
     Dosage: UP TO 4 TIMES DAILY
  6. LISINOPRIL [Concomitant]
     Indication: HYPERTENSION
     Dosage: DAILY
  7. SIMVASTATIN [Concomitant]
     Indication: BLOOD CHOLESTEROL INCREASED
     Dosage: DAILY
  8. BENTYL [Concomitant]
     Indication: ABDOMINAL PAIN
  9. EYE DROPS [Concomitant]
     Indication: GLAUCOMA
     Dosage: DAILY

REACTIONS (3)
  - ABDOMINAL DISTENSION [None]
  - FLATULENCE [None]
  - ABDOMINAL PAIN [None]
